FAERS Safety Report 18086406 (Version 1)
Quarter: 2020Q3

REPORT INFORMATION
  Report Type: Spontaneous
  Country: US (occurrence: US)
  Receive Date: 20200728
  Receipt Date: 20200728
  Transmission Date: 20201103
  Serious: No
  Sender: FDA-Public Use
  Company Number: None

PATIENT
  Age: 29 Year
  Sex: Female

DRUGS (1)
  1. XELJANZ [Suspect]
     Active Substance: TOFACITINIB CITRATE
     Indication: OFF LABEL USE
     Route: 048
     Dates: start: 202001

REACTIONS (4)
  - Taste disorder [None]
  - Stomatitis [None]
  - Oropharyngeal pain [None]
  - Pain [None]

NARRATIVE: CASE EVENT DATE: 202003
